FAERS Safety Report 20795473 (Version 1)
Quarter: 2022Q2

REPORT INFORMATION
  Report Type: Spontaneous
  Country: US (occurrence: US)
  Receive Date: 20220506
  Receipt Date: 20220506
  Transmission Date: 20220720
  Serious: Yes (Hospitalization, Other)
  Sender: FDA-Public Use
  Company Number: US-APOTEX-2022AP007112

PATIENT
  Weight: 54 kg

DRUGS (4)
  1. GUANFACINE [Suspect]
     Active Substance: GUANFACINE
     Indication: Anxiety
     Dosage: 1 DOSAGE FORM, QD
     Route: 048
  2. GUANFACINE [Suspect]
     Active Substance: GUANFACINE
     Dosage: 4 DOSAGE FORM
     Route: 048
  3. ESCITALOPRAM [Suspect]
     Active Substance: ESCITALOPRAM OXALATE
     Indication: Depression
     Dosage: 1 DOSAGE FORM, QD
     Route: 048
  4. ESCITALOPRAM [Suspect]
     Active Substance: ESCITALOPRAM OXALATE
     Indication: Anxiety
     Dosage: 3 DOSAGE FORM
     Route: 048

REACTIONS (8)
  - Intentional overdose [Unknown]
  - Exposure via ingestion [Unknown]
  - Toxicity to various agents [Unknown]
  - Supraventricular extrasystoles [Unknown]
  - Bradycardia [Recovered/Resolved]
  - Somnolence [Recovered/Resolved]
  - Dizziness [Recovered/Resolved]
  - Hypotension [Recovered/Resolved]
